FAERS Safety Report 7797136-4 (Version None)
Quarter: 2011Q4

REPORT INFORMATION
  Report Type: 
  Country: None (occurrence: None)
  Receive Date: 20111005
  Receipt Date: 20110923
  Transmission Date: 20120403
  Serious: Yes (Other)
  Sender: FDA-Public Use
  Company Number: GB-ROCHE-804398

PATIENT
  Age: 68 Year
  Sex: Female
  Weight: 100 kg

DRUGS (11)
  1. VENLAFAXINE HYDROCHLORIDE [Concomitant]
     Route: 048
  2. LANSOPRAZOLE [Concomitant]
     Indication: DYSPEPSIA
     Route: 048
  3. PENICILLIN V [Concomitant]
     Route: 048
  4. VENLAFAXINE HYDROCHLORIDE [Concomitant]
     Route: 048
  5. DOXAZOSIN MESYLATE [Concomitant]
     Indication: HYPERTENSION
     Route: 048
  6. FOLIC ACID [Concomitant]
     Route: 048
  7. CEFTRIAXONE [Suspect]
     Indication: CELLULITIS
     Route: 042
     Dates: start: 20110909, end: 20110909
  8. FLOXACILLIN SODIUM [Concomitant]
     Route: 048
  9. OLMESARTAN MEDOXOMIL [Concomitant]
     Route: 048
  10. BUTRANS [Concomitant]
     Route: 065
  11. METHOTREXATE [Concomitant]
     Indication: RHEUMATOID ARTHRITIS
     Route: 058

REACTIONS (2)
  - CHEST PAIN [None]
  - PAIN IN JAW [None]
